FAERS Safety Report 21854160 (Version 1)
Quarter: 2023Q1

REPORT INFORMATION
  Report Type: Spontaneous
  Country: NO (occurrence: NO)
  Receive Date: 20230112
  Receipt Date: 20230112
  Transmission Date: 20230418
  Serious: Yes (Other)
  Sender: FDA-Public Use
  Company Number: NO-ROCHE-3221094

PATIENT
  Sex: Female

DRUGS (13)
  1. BENDAMUSTINE HYDROCHLORIDE [Suspect]
     Active Substance: BENDAMUSTINE HYDROCHLORIDE
     Indication: Diffuse large B-cell lymphoma
     Dosage: ON 08/JUL/2022, SHE RECEIVED MOST RECENT DOSE
     Route: 065
     Dates: start: 20220407
  2. BENDAMUSTINE HYDROCHLORIDE [Suspect]
     Active Substance: BENDAMUSTINE HYDROCHLORIDE
     Dosage: ON 01/FEB/2021, SHE RECEIVED MOST RECENT DOSE
     Route: 065
     Dates: start: 20200909
  3. DOXORUBICIN [Suspect]
     Active Substance: DOXORUBICIN
     Indication: Diffuse large B-cell lymphoma
     Dosage: UNK
     Route: 065
  4. POLATUZUMAB VEDOTIN [Suspect]
     Active Substance: POLATUZUMAB VEDOTIN
     Indication: Diffuse large B-cell lymphoma
     Dosage: ON 08/JUL/2022, SHE RECEIVED MOST RECENT DOSE
     Route: 065
     Dates: start: 20220407
  5. IFOSFAMIDE [Suspect]
     Active Substance: IFOSFAMIDE
     Indication: Diffuse large B-cell lymphoma
     Dosage: ON 30/JUL/2018, SHE RECEIVED MOST RECENT DOSE
     Route: 065
     Dates: start: 20180401
  6. TROFOSFAMIDE [Suspect]
     Active Substance: TROFOSFAMIDE
     Indication: Diffuse large B-cell lymphoma
     Dosage: ON 06/APR/2022, SHE RECEIVED MOST RECENT DOSE
     Route: 065
     Dates: start: 20210504
  7. VINCRISTINE [Suspect]
     Active Substance: VINCRISTINE
     Indication: Diffuse large B-cell lymphoma
     Dosage: UNK
     Route: 065
  8. RITUXIMAB [Suspect]
     Active Substance: RITUXIMAB
     Indication: Diffuse large B-cell lymphoma
     Dosage: 08/JUL/2022, SHE RECEIVED MOST RECENT DOSE
     Route: 065
     Dates: start: 20220407
  9. RITUXIMAB [Suspect]
     Active Substance: RITUXIMAB
     Dosage: ON 30/JUL/2018, SHE RECEIVED MOST RECENT DOSE
     Route: 065
     Dates: start: 20180401
  10. RITUXIMAB [Suspect]
     Active Substance: RITUXIMAB
     Dosage: 01/FEB/2021, SHE RECEIVED MOST RECENT DOSE
     Route: 065
     Dates: start: 20200909
  11. CYCLOPHOSPHAMIDE [Suspect]
     Active Substance: CYCLOPHOSPHAMIDE
     Indication: Diffuse large B-cell lymphoma
     Dosage: UNK
     Route: 065
  12. PREDNISOLONE [Suspect]
     Active Substance: PREDNISOLONE
     Indication: Diffuse large B-cell lymphoma
     Dosage: UNK
     Route: 065
  13. ETOPOSIDE [Suspect]
     Active Substance: ETOPOSIDE
     Indication: Diffuse large B-cell lymphoma
     Dosage: ON 30/JUL/2018, SHE RECEIVED MOST RECENT DOSE
     Route: 065
     Dates: start: 20180401

REACTIONS (2)
  - Metastatic lymphoma [Unknown]
  - Disease progression [Unknown]
